FAERS Safety Report 13834461 (Version 1)
Quarter: 2017Q3

REPORT INFORMATION
  Report Type: Spontaneous
  Country: MY (occurrence: MY)
  Receive Date: 20170804
  Receipt Date: 20170804
  Transmission Date: 20171127
  Serious: Yes (Other)
  Sender: FDA-Public Use
  Company Number: PHHY2017MY114738

PATIENT
  Age: 71 Year
  Sex: Female

DRUGS (1)
  1. BISOHEXAL [Suspect]
     Active Substance: BISOPROLOL FUMARATE
     Indication: HYPERTENSION
     Route: 048

REACTIONS (4)
  - Palpitations [Recovered/Resolved]
  - Oedema peripheral [Recovered/Resolved]
  - Product substitution issue [Recovered/Resolved]
  - Dyspnoea [Recovered/Resolved]
